FAERS Safety Report 25034631 (Version 1)
Quarter: 2025Q1

REPORT INFORMATION
  Report Type: Spontaneous
  Country: US (occurrence: US)
  Receive Date: 20250304
  Receipt Date: 20250304
  Transmission Date: 20250409
  Serious: Yes (Death, Other)
  Sender: ABBVIE
  Company Number: US-ABBVIE-6160090

PATIENT

DRUGS (1)
  1. CREON [Suspect]
     Active Substance: PANCRELIPASE AMYLASE\PANCRELIPASE LIPASE\PANCRELIPASE PROTEASE
     Indication: Product used for unknown indication
     Route: 048

REACTIONS (10)
  - Death [Fatal]
  - Off label use [Unknown]
  - Diarrhoea [Unknown]
  - Dry mouth [Unknown]
  - Gastrostomy [Unknown]
  - Weight decreased [Unknown]
  - Product odour abnormal [Unknown]
  - Nausea [Unknown]
  - Product use complaint [Unknown]
  - Product physical consistency issue [Unknown]
